FAERS Safety Report 6811783-5 (Version None)
Quarter: 2010Q2

REPORT INFORMATION
  Report Type: 
  Country: None (occurrence: None)
  Receive Date: 20100628
  Receipt Date: 20100614
  Transmission Date: 20101027
  Serious: Yes (Disabling)
  Sender: FDA-Public Use
  Company Number: 2010-2137

PATIENT
  Age: 13 Year
  Sex: Male

DRUGS (1)
  1. SOMATULINE DEPOT [Suspect]
     Indication: BODY HEIGHT INCREASED
     Dosage: (90 MG, 1 IN 28 D), SUBCUTANEOUS
     Route: 058
     Dates: start: 20100501

REACTIONS (2)
  - DIARRHOEA [None]
  - VOMITING [None]
